FAERS Safety Report 19425074 (Version 1)
Quarter: 2021Q2

REPORT INFORMATION
  Report Type: Spontaneous
  Country: US (occurrence: US)
  Receive Date: 20210617
  Receipt Date: 20210617
  Transmission Date: 20210717
  Serious: No
  Sender: FDA-Public Use
  Company Number: US-009507513-2106USA002621

PATIENT
  Age: 83 Year
  Sex: Female

DRUGS (5)
  1. ALBUTEROL SULFATE. [Suspect]
     Active Substance: ALBUTEROL SULFATE
     Dosage: USE AS NEEDED/4 SEPARATE INHALERS
     Dates: start: 2021
  2. ALBUTEROL SULFATE. [Suspect]
     Active Substance: ALBUTEROL SULFATE
     Indication: ASTHMA
     Dosage: USE AS NEEDED/4 SEPARATE INHALERS
     Dates: start: 2021
  3. ALBUTEROL SULFATE. [Suspect]
     Active Substance: ALBUTEROL SULFATE
     Dosage: USE AS NEEDED/4 SEPARATE INHALERS
     Dates: start: 2021
  4. ALVESCO [Concomitant]
     Active Substance: CICLESONIDE
  5. ALBUTEROL SULFATE. [Suspect]
     Active Substance: ALBUTEROL SULFATE
     Indication: ASTHMA
     Dosage: 108 MCG, USE AS NEEDED, QUANTITY 1
     Dates: start: 202102

REACTIONS (3)
  - Device malfunction [Unknown]
  - Poor quality device used [Unknown]
  - Wrong technique in device usage process [Unknown]

NARRATIVE: CASE EVENT DATE: 202102
